FAERS Safety Report 13818914 (Version 1)
Quarter: 2017Q3

REPORT INFORMATION
  Report Type: Report from Study
  Country: US (occurrence: US)
  Receive Date: 20170731
  Receipt Date: 20170731
  Transmission Date: 20171127
  Serious: No
  Sender: FDA-Public Use
  Company Number: US-EXELIXIS-CABO-17008909

PATIENT
  Sex: Male

DRUGS (18)
  1. DILTIAZEM. [Concomitant]
     Active Substance: DILTIAZEM
  2. LOSARTAN. [Concomitant]
     Active Substance: LOSARTAN
  3. PREDNISONE. [Concomitant]
     Active Substance: PREDNISONE
  4. LYRICA [Concomitant]
     Active Substance: PREGABALIN
  5. MORPHINE [Concomitant]
     Active Substance: MORPHINE
  6. NIACIN. [Concomitant]
     Active Substance: NIACIN
  7. METFORMIN [Concomitant]
     Active Substance: METFORMIN HYDROCHLORIDE
  8. LEVOTHYROXINE. [Concomitant]
     Active Substance: LEVOTHYROXINE
  9. PROCHLORPERAZINE. [Concomitant]
     Active Substance: PROCHLORPERAZINE
  10. CABOMETYX [Suspect]
     Active Substance: CABOZANTINIB S-MALATE
     Indication: RENAL CANCER
     Dosage: 60 MG, QD
     Route: 048
     Dates: start: 20170125
  11. FUROSEMIDE. [Concomitant]
     Active Substance: FUROSEMIDE
  12. ZOLOFT [Concomitant]
     Active Substance: SERTRALINE HYDROCHLORIDE
  13. ATORVASTATIN [Concomitant]
     Active Substance: ATORVASTATIN
  14. GLIPIZIDE. [Concomitant]
     Active Substance: GLIPIZIDE
  15. LANTUS [Concomitant]
     Active Substance: INSULIN GLARGINE
  16. TAMSULOSIN [Concomitant]
     Active Substance: TAMSULOSIN
  17. ENOXAPARIN [Concomitant]
     Active Substance: ENOXAPARIN
  18. KLOR-CON [Concomitant]
     Active Substance: POTASSIUM CHLORIDE

REACTIONS (2)
  - Blister [Unknown]
  - Diarrhoea [Unknown]
